FAERS Safety Report 4588153-6 (Version None)
Quarter: 2005Q1

REPORT INFORMATION
  Report Type: 
  Country: None (occurrence: None)
  Receive Date: 20050221
  Receipt Date: 20050211
  Transmission Date: 20050727
  Serious: Yes (Death)
  Sender: FDA-Public Use
  Company Number: PHEH2005US02004

PATIENT
  Age: 72 Year
  Sex: Male

DRUGS (1)
  1. FORADIL [Suspect]
     Dosage: UNK,UNK

REACTIONS (1)
  - DEATH [None]
